FAERS Safety Report 5819705-0 (Version None)
Quarter: 2008Q3

REPORT INFORMATION
  Report Type: 
  Country: None (occurrence: None)
  Receive Date: 20080723
  Receipt Date: 20080711
  Transmission Date: 20090109
  Serious: Yes (Hospitalization)
  Sender: FDA-Public Use
  Company Number: US-ELI_LILLY_AND_COMPANY-US200807002433

PATIENT
  Age: 67 Year
  Sex: Female

DRUGS (3)
  1. FORTEO [Suspect]
     Indication: OSTEOPOROSIS
     Dosage: 20 UG, DAILY (1/D)
     Dates: start: 20080104, end: 20080617
  2. PREDNISONE TAB [Concomitant]
     Indication: SARCOIDOSIS
     Dosage: 1 MG, UNK
     Dates: start: 20080301
  3. POTASSIUM CHLORIDE [Concomitant]
     Dosage: 25 MEQ, DAILY (1/D)

REACTIONS (4)
  - ASTHENIA [None]
  - BLOOD MAGNESIUM DECREASED [None]
  - BLOOD POTASSIUM DECREASED [None]
  - MOBILITY DECREASED [None]
